FAERS Safety Report 5671166-0 (Version None)
Quarter: 2008Q1

REPORT INFORMATION
  Report Type: 
  Country: None (occurrence: None)
  Receive Date: 20080317
  Receipt Date: 20080317
  Transmission Date: 20080703
  Serious: Yes (Hospitalization)
  Sender: FDA-Public Use
  Company Number: None

PATIENT
  Age: 45 Year
  Sex: Male
  Weight: 116.5 kg

DRUGS (2)
  1. ENOXAPARIN SODIUM [Suspect]
     Dosage: 150 MG UD OTHER
     Route: 050
     Dates: start: 20071115, end: 20071123
  2. ASPIRIN [Suspect]
     Dosage: 325 MG EVERY DAY PO
     Route: 048
     Dates: start: 20071115, end: 20071123

REACTIONS (3)
  - CATHETER SITE HAEMORRHAGE [None]
  - ECCHYMOSIS [None]
  - INJECTION SITE BRUISING [None]
